FAERS Safety Report 5258378-5 (Version None)
Quarter: 2007Q1

REPORT INFORMATION
  Report Type: 
  Country: None (occurrence: None)
  Receive Date: 20070308
  Receipt Date: 20070228
  Transmission Date: 20070707
  Serious: Yes (Hospitalization)
  Sender: FDA-Public Use
  Company Number: HQWYE214128FEB07

PATIENT
  Sex: Male

DRUGS (1)
  1. CORDARONE [Suspect]
     Indication: ATRIAL FIBRILLATION
     Dosage: 200 MG TABLET (DOSE AND REGIMEN UNKNOWN)
     Route: 048
     Dates: start: 19970101, end: 20070216

REACTIONS (3)
  - ASTHENIA [None]
  - PRURITUS [None]
  - PULMONARY FIBROSIS [None]
